FAERS Safety Report 14704839 (Version 1)
Quarter: 2018Q2

REPORT INFORMATION
  Report Type: Spontaneous
  Country: MY (occurrence: MY)
  Receive Date: 20180402
  Receipt Date: 20180402
  Transmission Date: 20180711
  Serious: Yes (Hospitalization)
  Sender: FDA-Public Use
  Company Number: MY-BAYER-2018-057991

PATIENT
  Weight: 1.8 kg

DRUGS (1)
  1. CIPROFLOXACIN MONOHYDROCHLORIDE [Suspect]
     Active Substance: CIPROFLOXACIN
     Indication: MYCOBACTERIUM ABSCESSUS INFECTION
     Dosage: UNK
     Route: 064

REACTIONS (3)
  - Foetal exposure timing unspecified [None]
  - Premature baby [None]
  - Low birth weight baby [None]
